FAERS Safety Report 7822051-7 (Version None)
Quarter: 2011Q4

REPORT INFORMATION
  Report Type: 
  Country: None (occurrence: None)
  Receive Date: 20111018
  Receipt Date: 20111011
  Transmission Date: 20120403
  Serious: Yes (Other)
  Sender: FDA-Public Use
  Company Number: PHHY2011JP90873

PATIENT
  Sex: Male
  Weight: 59 kg

DRUGS (7)
  1. URIEF [Concomitant]
     Dosage: 4 MG
     Route: 048
  2. METHYCOBAL [Concomitant]
     Dosage: 500 UG
     Route: 048
  3. AFINITOR [Suspect]
     Indication: METASTATIC RENAL CELL CARCINOMA
     Dosage: 10 MG DAILY
     Route: 048
     Dates: start: 20110802, end: 20110817
  4. AMLODIPINE MALEATE [Concomitant]
     Dosage: 5 MG
  5. INTERFERON ALFA [Concomitant]
     Indication: METASTATIC RENAL CELL CARCINOMA
     Dosage: 6000000 IU
  6. LANSOPRAZOLE [Concomitant]
     Dosage: 15 MG
     Route: 048
  7. AFINITOR [Suspect]
     Dosage: 10 MG DAILY
     Route: 048
     Dates: start: 20110912

REACTIONS (2)
  - DEMENTIA [None]
  - NEUTROPHIL COUNT DECREASED [None]
